FAERS Safety Report 7540446-6 (Version None)
Quarter: 2011Q2

REPORT INFORMATION
  Report Type: 
  Country: None (occurrence: None)
  Receive Date: 20110610
  Receipt Date: 20110607
  Transmission Date: 20111010
  Serious: Yes (Life-Threatening, Hospitalization, Other)
  Sender: FDA-Public Use
  Company Number: DE-ASTRAZENECA-2011SE34674

PATIENT
  Age: 71 Year
  Sex: Female
  Weight: 120 kg

DRUGS (1)
  1. PROPOFOL [Suspect]
     Route: 042
     Dates: start: 20110406, end: 20110406

REACTIONS (1)
  - RENAL FAILURE ACUTE [None]
